FAERS Safety Report 17647396 (Version 3)
Quarter: 2020Q2

REPORT INFORMATION
  Report Type: Spontaneous
  Country: BE (occurrence: BE)
  Receive Date: 20200408
  Receipt Date: 20200630
  Transmission Date: 20200713
  Serious: Yes (Hospitalization, Disabling)
  Sender: FDA-Public Use
  Company Number: BE-009507513-2004BEL001999

PATIENT
  Age: 55 Year
  Weight: 93 kg

DRUGS (13)
  1. ISO-BETADINE [Concomitant]
     Active Substance: POVIDONE-IODINE
     Dosage: 3 DOSAGE FORM, QD
  2. BISOPROLOL [Concomitant]
     Active Substance: BISOPROLOL
     Indication: HYPERTENSION
     Dosage: 1 DOSAGE FORM, QD
     Route: 048
     Dates: start: 2007
  3. ASAFLOW [Concomitant]
     Active Substance: ASPIRIN
     Indication: ISCHAEMIC HEART DISEASE PROPHYLAXIS
     Dosage: 2 DOSAGE FORM, QD
     Route: 048
     Dates: start: 1998
  4. SIMVASTATIN. [Concomitant]
     Active Substance: SIMVASTATIN
     Indication: ISCHAEMIC HEART DISEASE PROPHYLAXIS
     Dosage: 1 DOSAGE FORM, QD
     Route: 048
     Dates: start: 2009
  5. PEMBROLIZUMAB. [Suspect]
     Active Substance: PEMBROLIZUMAB
     Indication: SQUAMOUS CELL CARCINOMA OF THE ORAL CAVITY
     Dosage: NORMALLY 1 DOSAGE FORM EVERY 3 WEEKS
     Route: 042
     Dates: start: 20191127
  6. MORPHINE [Concomitant]
     Active Substance: MORPHINE
     Indication: PAIN
     Dosage: 20 MILLILITER, QD
     Route: 048
     Dates: start: 201905
  7. LYRICA [Concomitant]
     Active Substance: PREGABALIN
     Indication: NEURALGIA
     Dosage: IN THE EVENING
     Route: 048
     Dates: start: 201906
  8. DUOVENT [Concomitant]
     Active Substance: FENOTEROL HYDROBROMIDE
     Dosage: 3 DOSAGE FORM, QD
     Route: 048
  9. MOLAXOLE [Concomitant]
     Active Substance: POLYETHYLENE GLYCOL 3350\POTASSIUM CHLORIDE\SODIUM BICARBONATE\SODIUM CHLORIDE
     Indication: CONSTIPATION
     Dosage: IF NECESSARY
     Route: 048
  10. ENALAPRIL MALEATE. [Concomitant]
     Active Substance: ENALAPRIL MALEATE
     Indication: CARDIOVASCULAR EVENT PROPHYLAXIS
     Dosage: 1 DOSAGE FORM, QD
     Route: 048
     Dates: start: 1998
  11. CARBOPLATIN. [Concomitant]
     Active Substance: CARBOPLATIN
     Indication: SQUAMOUS CELL CARCINOMA OF THE ORAL CAVITY
     Dosage: 625 MILLIGRAM
     Route: 042
     Dates: start: 20191128, end: 20191128
  12. SIMVASTATIN. [Concomitant]
     Active Substance: SIMVASTATIN
     Indication: ISCHAEMIC HEART DISEASE PROPHYLAXIS
  13. FLUOROURACIL. [Concomitant]
     Active Substance: FLUOROURACIL
     Indication: SQUAMOUS CELL CARCINOMA OF THE ORAL CAVITY
     Dosage: 7125 MILLIGRAM
     Route: 042
     Dates: start: 20191128, end: 20191228

REACTIONS (5)
  - Acute kidney injury [Not Recovered/Not Resolved]
  - Paraplegia [Not Recovered/Not Resolved]
  - Myelitis [Not Recovered/Not Resolved]
  - Rhabdomyolysis [Not Recovered/Not Resolved]
  - Acute respiratory failure [Not Recovered/Not Resolved]

NARRATIVE: CASE EVENT DATE: 20191209
